FAERS Safety Report 18996564 (Version 1)
Quarter: 2021Q1

REPORT INFORMATION
  Report Type: Spontaneous
  Country: US (occurrence: US)
  Receive Date: 20210311
  Receipt Date: 20210311
  Transmission Date: 20210420
  Serious: Yes (Hospitalization)
  Sender: FDA-Public Use
  Company Number: None

PATIENT
  Age: 67 Year
  Sex: Female
  Weight: 117 kg

DRUGS (18)
  1. TRULICITY 1.5MG/0.5MOL [Concomitant]
     Dates: start: 20201215
  2. BREO 200?25 INHALER [Concomitant]
     Dates: start: 20201002
  3. BUSPAR 10MG [Concomitant]
     Dates: start: 20201204
  4. OXYBUTYNIN ER 10MG [Concomitant]
     Dates: start: 20200804
  5. CYMBALTA [Concomitant]
     Active Substance: DULOXETINE HYDROCHLORIDE
     Dates: start: 20200403
  6. EZETIMIBE 10MG [Concomitant]
     Active Substance: EZETIMIBE
     Dates: start: 20200812
  7. ARMOUR THYROID 105 MG/DAILY [Concomitant]
     Dates: start: 20200904
  8. TRAZODONE 300 MG [Concomitant]
     Dates: start: 20210114
  9. LISINOPRIL 20 MG [Concomitant]
     Active Substance: LISINOPRIL
     Dates: start: 20200804
  10. GABAPENTIN 300 MG [Concomitant]
     Active Substance: GABAPENTIN
     Dates: start: 20210125
  11. BUPROPION 150 MG [Concomitant]
     Active Substance: BUPROPION
     Dates: start: 20200228
  12. JARDIANCE [Concomitant]
     Active Substance: EMPAGLIFLOZIN
     Dates: start: 20200904
  13. PROTONIX [Concomitant]
     Active Substance: PANTOPRAZOLE SODIUM
     Dates: start: 20201204
  14. BAMLANIVIMAB. [Suspect]
     Active Substance: BAMLANIVIMAB
     Indication: COVID-19
     Dosage: ?          OTHER FREQUENCY:ONCE;?
     Route: 042
     Dates: start: 20210304, end: 20210304
  15. ARICEPT 10MG [Concomitant]
     Dates: start: 20200804
  16. NPH INSULIN 70/30, U?100 [Concomitant]
     Dates: start: 20201215
  17. ALBUTEROL HFA 90 MCG INHALER [Concomitant]
     Dates: start: 20210303
  18. HYDROCHLOROTHIAZIDE 25MG [Concomitant]
     Active Substance: HYDROCHLOROTHIAZIDE
     Dates: start: 20200910

REACTIONS (14)
  - Fall [None]
  - Arthralgia [None]
  - Rhonchi [None]
  - Dyspnoea [None]
  - Asthenia [None]
  - Muscle tightness [None]
  - Diarrhoea [None]
  - Oxygen saturation decreased [None]
  - Fatigue [None]
  - Bronchial wall thickening [None]
  - Blood sodium decreased [None]
  - Blood ketone body [None]
  - Hypoxia [None]
  - White blood cell count decreased [None]

NARRATIVE: CASE EVENT DATE: 20210309
